FAERS Safety Report 23352676 (Version 1)
Quarter: 2023Q4

REPORT INFORMATION
  Report Type: Report from Study
  Country: CA (occurrence: CA)
  Receive Date: 20231230
  Receipt Date: 20231230
  Transmission Date: 20240110
  Serious: Yes (Other)
  Sender: FDA-Public Use
  Company Number: CA-002147023-NVSC2020CA299070

PATIENT
  Age: 54 Year
  Sex: Female

DRUGS (1)
  1. AIMOVIG [Suspect]
     Active Substance: ERENUMAB-AOOE
     Indication: Migraine
     Dosage: UNK
     Route: 065
     Dates: start: 20190409

REACTIONS (9)
  - Neoplasm malignant [Unknown]
  - COVID-19 [Unknown]
  - Thyrotoxic crisis [Unknown]
  - Ankylosing spondylitis [Unknown]
  - Illness [Unknown]
  - Influenza [Unknown]
  - Immune system disorder [Unknown]
  - Migraine [Unknown]
  - Inappropriate schedule of product administration [Unknown]

NARRATIVE: CASE EVENT DATE: 20191001
